FAERS Safety Report 4417932-0 (Version None)
Quarter: 2004Q3

REPORT INFORMATION
  Report Type: 
  Country: None (occurrence: None)
  Receive Date: 20040803
  Receipt Date: 20040722
  Transmission Date: 20050211
  Serious: Yes (Life-Threatening, Hospitalization)
  Sender: FDA-Public Use
  Company Number: 2004PK01141

PATIENT
  Sex: Male
  Weight: 70 kg

DRUGS (5)
  1. SEROQUEL [Suspect]
     Indication: PSYCHOTIC DISORDER
     Dosage: 400 MG DAILY PO
     Route: 048
     Dates: start: 20040617, end: 20040627
  2. REMINYL [Concomitant]
  3. MELPERON [Concomitant]
  4. REMINYL [Concomitant]
  5. MELPERON [Concomitant]

REACTIONS (5)
  - BRADYCARDIA [None]
  - DRUG INTERACTION [None]
  - DRUG LEVEL INCREASED [None]
  - HYPOTENSION [None]
  - SYNCOPE [None]
